FAERS Safety Report 9119011 (Version 1)
Quarter: 2013Q1

REPORT INFORMATION
  Report Type: Spontaneous
  Country: US (occurrence: None)
  Receive Date: 20130221
  Receipt Date: 20130221
  Transmission Date: 20140127
  Serious: Yes (Other)
  Sender: FDA-Public Use
  Company Number: None

PATIENT
  Age: 62 Year
  Sex: Female

DRUGS (4)
  1. AVASTIN [Suspect]
     Indication: MACULAR OEDEMA
     Dosage: 1 EVERY 4-5 WEEKS INTRAOCULAR
     Route: 031
     Dates: start: 20121002, end: 20121101
  2. AVASTIN [Suspect]
     Indication: VENOUS OCCLUSION
     Dosage: 1 EVERY 4-5 WEEKS INTRAOCULAR
     Route: 031
     Dates: start: 20121002, end: 20121101
  3. LUCENTIS [Suspect]
     Indication: MACULAR OEDEMA
     Dosage: 1 EVERY 4-5 WEEKS INTRAOCULAR
     Route: 031
     Dates: start: 20121206, end: 20130205
  4. LUCENTIS [Suspect]
     Indication: VENOUS OCCLUSION
     Dosage: 1 EVERY 4-5 WEEKS INTRAOCULAR
     Route: 031
     Dates: start: 20121206, end: 20130205

REACTIONS (1)
  - Endophthalmitis [None]
